FAERS Safety Report 23395952 (Version 1)
Quarter: 2024Q1

REPORT INFORMATION
  Report Type: Spontaneous
  Country: US (occurrence: US)
  Receive Date: 20240112
  Receipt Date: 20240112
  Transmission Date: 20240410
  Serious: No
  Sender: FDA-Public Use
  Company Number: US-MLMSERVICE-20231228-4747588-1

PATIENT
  Age: 17 Year
  Sex: Male

DRUGS (7)
  1. LORAZEPAM [Suspect]
     Active Substance: LORAZEPAM
     Indication: Catatonia
     Dates: start: 2022
  2. LORAZEPAM [Suspect]
     Active Substance: LORAZEPAM
     Dosage: 2-3 TIMES DAILY
     Dates: start: 2022
  3. OLANZAPINE [Concomitant]
     Active Substance: OLANZAPINE
     Indication: Psychotic disorder
     Dosage: NIGHTLY STARTED FROM THE 5TH WEEK TO THE 8TH WEEK
     Dates: start: 2022
  4. OLANZAPINE [Concomitant]
     Active Substance: OLANZAPINE
     Indication: Agitation
  5. METHYLPREDNISOLONE [Concomitant]
     Active Substance: METHYLPREDNISOLONE
     Indication: Encephalitis autoimmune
     Route: 042
     Dates: start: 2022, end: 2022
  6. VALPROATE SODIUM [Concomitant]
     Active Substance: VALPROATE SODIUM
     Indication: Psychotic disorder
     Dosage: 1ST WEEK TO THE 8TH WEEK
     Dates: start: 2022
  7. RITUXIMAB [Concomitant]
     Active Substance: RITUXIMAB
     Indication: Encephalitis autoimmune
     Dosage: FROM 4TH WEEK TO 5TH WEEK
     Route: 042
     Dates: start: 2022

REACTIONS (1)
  - Sedation complication [Unknown]

NARRATIVE: CASE EVENT DATE: 20220101
